FAERS Safety Report 8218562-5 (Version None)
Quarter: 2012Q1

REPORT INFORMATION
  Report Type: 
  Country: None (occurrence: None)
  Receive Date: 20120306
  Receipt Date: 20110127
  Transmission Date: 20120608
  Serious: Yes (Other)
  Sender: FDA-Public Use
  Company Number: US-005872

PATIENT
  Age: 73 Year
  Sex: Male
  Weight: 72 kg

DRUGS (3)
  1. ISOVUE-300 [Suspect]
     Indication: COMPUTERISED TOMOGRAM
     Dosage: 100ML ONCE  INTRAVENOUS (NOT OTHERWISE SPECIFIED)
     Route: 042
     Dates: start: 20110113, end: 20110113
  2. ISOVUE-300 [Suspect]
     Indication: DYSPHONIA
     Dosage: 100ML ONCE  INTRAVENOUS (NOT OTHERWISE SPECIFIED)
     Route: 042
     Dates: start: 20110113, end: 20110113
  3. ISOVUE-300 [Suspect]
     Indication: MASS
     Dosage: 100ML ONCE  INTRAVENOUS (NOT OTHERWISE SPECIFIED)
     Route: 042
     Dates: start: 20110113, end: 20110113

REACTIONS (5)
  - HYPERHIDROSIS [None]
  - COLD SWEAT [None]
  - DYSPNOEA [None]
  - TACHYCARDIA [None]
  - HYPERTENSION [None]
